FAERS Safety Report 5945525-2 (Version None)
Quarter: 2008Q4

REPORT INFORMATION
  Report Type: 
  Country: None (occurrence: None)
  Receive Date: 20081107
  Receipt Date: 20081030
  Transmission Date: 20090506
  Serious: No
  Sender: FDA-Public Use
  Company Number: US-B.I. PHARMACEUTICALS,INC./RIDGEFIELD-2008-BP-16595PF

PATIENT
  Age: 62 Year
  Sex: Female

DRUGS (6)
  1. SPIRIVA [Suspect]
     Indication: CHRONIC OBSTRUCTIVE PULMONARY DISEASE
     Dosage: 18MCG
     Route: 055
     Dates: start: 20080801
  2. NORVASC [Concomitant]
     Indication: HYPERTENSION
  3. SEREVENT [Concomitant]
     Indication: EMPHYSEMA
  4. LIPITOR [Concomitant]
     Dates: end: 20081025
  5. LISINOPRIL [Concomitant]
     Indication: HYPERTENSION
  6. ASPIRIN [Concomitant]
     Indication: CARDIAC DISORDER

REACTIONS (3)
  - ARTHRALGIA [None]
  - MYALGIA [None]
  - UPPER RESPIRATORY TRACT INFECTION [None]
